FAERS Safety Report 4430925-2 (Version None)
Quarter: 2004Q3

REPORT INFORMATION
  Report Type: 
  Country: None (occurrence: None)
  Receive Date: 20040823
  Receipt Date: 20040818
  Transmission Date: 20050211
  Serious: Yes (Life-Threatening, Hospitalization)
  Sender: FDA-Public Use
  Company Number: DE-MERCK-0408DEU00140

PATIENT
  Age: 56 Year
  Sex: Female

DRUGS (1)
  1. VIOXX [Suspect]
     Indication: LOCALISED OSTEOARTHRITIS
     Route: 048
     Dates: start: 20040720, end: 20040722

REACTIONS (1)
  - CEREBROVASCULAR ACCIDENT [None]
